FAERS Safety Report 8032693-4 (Version None)
Quarter: 2012Q1

REPORT INFORMATION
  Report Type: 
  Country: None (occurrence: None)
  Receive Date: 20120110
  Receipt Date: 20120104
  Transmission Date: 20120608
  Serious: Yes (Hospitalization, Other)
  Sender: FDA-Public Use
  Company Number: US-BAYER-2011-117800

PATIENT
  Age: 51 Year
  Sex: Male
  Weight: 70.295 kg

DRUGS (4)
  1. BETASERON [Suspect]
     Dosage: 8 MIU, QOD
  2. ATENOLOL [Concomitant]
  3. MARINOL [Concomitant]
  4. BETASERON [Suspect]
     Indication: RELAPSING-REMITTING MULTIPLE SCLEROSIS
     Dosage: 8 MIU, UNK
     Route: 058
     Dates: start: 20060413

REACTIONS (9)
  - DYSPNOEA [None]
  - INJECTION SITE PAIN [None]
  - CENTRAL NERVOUS SYSTEM LESION [None]
  - HYPERTENSION [None]
  - INJECTION SITE DISCOLOURATION [None]
  - HYPERTENSIVE CRISIS [None]
  - INSOMNIA [None]
  - PLEURAL EFFUSION [None]
  - PAIN [None]
